FAERS Safety Report 15020313 (Version 1)
Quarter: 2018Q2

REPORT INFORMATION
  Report Type: Spontaneous
  Country: DE (occurrence: DE)
  Receive Date: 20180618
  Receipt Date: 20180618
  Transmission Date: 20180711
  Serious: Yes (Death, Life-Threatening, Hospitalization, Other)
  Sender: FDA-Public Use
  Company Number: DE-SUN PHARMACEUTICAL INDUSTRIES LTD-2018RR-175752

PATIENT
  Age: 56 Year
  Sex: Female
  Weight: 49 kg

DRUGS (57)
  1. NOVAMINSULFON [Concomitant]
     Active Substance: METAMIZOLE
     Dosage: 10.5 MG, UNK
     Route: 042
     Dates: start: 20150810, end: 20150826
  2. NOVAMINSULFON [Concomitant]
     Active Substance: METAMIZOLE
     Dosage: 1000 MG, UNK
     Route: 048
     Dates: start: 20160212
  3. NOVAMINSULFON [Concomitant]
     Active Substance: METAMIZOLE
     Dosage: 7.5 MG, UNK
     Route: 042
     Dates: start: 20150826, end: 20150831
  4. NOVAMINSULFON [Concomitant]
     Active Substance: METAMIZOLE
     Dosage: 5000 MG, UNK
     Route: 042
     Dates: start: 20160225
  5. NOVALGIN (METAMIZOLE SODIUM) [Concomitant]
     Active Substance: METAMIZOLE SODIUM
     Dosage: 5000 MG, UNK
     Route: 042
     Dates: start: 20150721, end: 20150810
  6. EFFENTORA [Concomitant]
     Active Substance: FENTANYL CITRATE
     Indication: PAIN
     Dosage: 100 ?G, UNK
     Route: 048
     Dates: end: 20150721
  7. OXALIPLATIN. [Suspect]
     Active Substance: OXALIPLATIN
     Dosage: 1 DF
     Route: 042
     Dates: start: 20150603, end: 20150805
  8. OXALIPLATIN. [Suspect]
     Active Substance: OXALIPLATIN
     Dosage: 78 MG, UNK
     Route: 042
     Dates: start: 20160108, end: 20160212
  9. NOVAMINSULFON [Concomitant]
     Active Substance: METAMIZOLE
     Dosage: 500 MG, UNK
     Route: 048
     Dates: start: 20150902, end: 20151103
  10. HALOPERIDOL. [Concomitant]
     Active Substance: HALOPERIDOL
     Dosage: UNK
     Route: 048
     Dates: start: 20150902, end: 201511
  11. HALOPERIDOL. [Concomitant]
     Active Substance: HALOPERIDOL
     Dosage: 0.03 MG, UNK
     Route: 042
     Dates: start: 20150901, end: 20150902
  12. NOVALGIN (METAMIZOLE SODIUM) [Concomitant]
     Active Substance: METAMIZOLE SODIUM
     Indication: BACK PAIN
     Dosage: 500 MG, UNK
     Route: 048
     Dates: start: 20150902
  13. KEPPRA [Concomitant]
     Active Substance: LEVETIRACETAM
     Indication: PRODUCT USED FOR UNKNOWN INDICATION
     Dosage: 500 MG, UNK
     Route: 042
     Dates: start: 20160301
  14. ZOFRAN [Concomitant]
     Active Substance: ONDANSETRON HYDROCHLORIDE
     Indication: VOMITING
     Dosage: 1-0-0
     Route: 048
     Dates: start: 20150605
  15. CALCIUM FOLINAT [Suspect]
     Active Substance: LEUCOVORIN CALCIUM
     Dosage: 304 MG, UNK
     Route: 042
     Dates: start: 20151124, end: 20151124
  16. 5-FLUOROURACIL [Suspect]
     Active Substance: FLUOROURACIL
     Dosage: 304-312 MG ()
     Route: 040
     Dates: start: 20151124, end: 20160212
  17. 5-FLUOROURACIL [Suspect]
     Active Substance: FLUOROURACIL
     Dosage: 2340 MG, UNK
     Route: 042
     Dates: start: 20160108, end: 20160110
  18. BEVACIZUMAB. [Suspect]
     Active Substance: BEVACIZUMAB
     Indication: COLORECTAL CANCER
     Dosage: DATE OF LAST DOSE PRIOR TO SAE: 30/JUN/2015 5 MG/KG
     Route: 042
     Dates: start: 20150603, end: 20151124
  19. HALOPERIDOL. [Concomitant]
     Active Substance: HALOPERIDOL
     Dosage: 0.07 MG, UNK
     Route: 042
     Dates: start: 20150810, end: 20150826
  20. MIRTAZAPIN [Concomitant]
     Active Substance: MIRTAZAPINE
     Dosage: 0-0-1
     Route: 048
  21. NOVALGIN (METAMIZOLE SODIUM) [Concomitant]
     Active Substance: METAMIZOLE SODIUM
     Indication: TUMOUR PAIN
     Dosage: 500 MG, UNK
     Route: 048
     Dates: start: 20150602, end: 20150728
  22. BEPANTHENE [Concomitant]
     Active Substance: DEXPANTHENOL
     Indication: PROPHYLAXIS
  23. CALCIUM FOLINAT [Suspect]
     Active Substance: LEUCOVORIN CALCIUM
     Dosage: 312 MG, UNK
     Route: 042
     Dates: start: 20160108, end: 20160212
  24. CALCIUM FOLINAT [Suspect]
     Active Substance: LEUCOVORIN CALCIUM
     Dosage: 240-468 MG ()
     Route: 042
     Dates: start: 20150603, end: 20160212
  25. IRINOTECAN [Suspect]
     Active Substance: IRINOTECAN
     Dosage: 125 MG, UNK
     Route: 042
     Dates: start: 20150723, end: 20150805
  26. 5-FLUOROURACIL [Suspect]
     Active Substance: FLUOROURACIL
     Dosage: 2280 MG, UNK
     Route: 042
     Dates: start: 20151124, end: 20151126
  27. NOVAMINSULFON [Concomitant]
     Active Substance: METAMIZOLE
     Dosage: 4.5 MG, UNK
     Route: 042
     Dates: start: 20150901, end: 20150902
  28. NOVALGIN (METAMIZOLE SODIUM) [Concomitant]
     Active Substance: METAMIZOLE SODIUM
     Dosage: UNK
     Route: 042
     Dates: start: 20160225, end: 20160226
  29. NEXIUM [Concomitant]
     Active Substance: ESOMEPRAZOLE MAGNESIUM
     Dosage: ()
     Route: 042
     Dates: start: 20160225
  30. ONDANSETRON [Concomitant]
     Active Substance: ONDANSETRON
     Indication: NAUSEA
     Dosage: 8 MG, UNK
     Route: 048
     Dates: start: 20150604
  31. OXALIPLATIN. [Suspect]
     Active Substance: OXALIPLATIN
     Dosage: 117 MG, UNK
     Route: 042
     Dates: start: 20160126, end: 20160126
  32. 5-FLUOROURACIL [Suspect]
     Active Substance: FLUOROURACIL
     Indication: COLORECTAL CANCER
     Dosage: 3510 MG, UNK
     Route: 042
     Dates: start: 20160126, end: 20160127
  33. 5-FLUOROURACIL [Suspect]
     Active Substance: FLUOROURACIL
     Dosage: 3420 MG, UNK
     Route: 041
     Dates: start: 20150903, end: 20151106
  34. 5-FLUOROURACIL [Suspect]
     Active Substance: FLUOROURACIL
     Dosage: 456 MG, UNK
     Route: 040
     Dates: start: 20150903, end: 20151104
  35. BEVACIZUMAB. [Suspect]
     Active Substance: BEVACIZUMAB
     Dosage: 260 MG, UNK
     Route: 042
     Dates: start: 20160212, end: 20160212
  36. NOVAMINSULFON [Concomitant]
     Active Substance: METAMIZOLE
     Dosage: 1000 MG, UNK
     Route: 042
     Dates: start: 20160225, end: 20160226
  37. HALOPERIDOL. [Concomitant]
     Active Substance: HALOPERIDOL
     Dosage: 0.05 MG, UNK
     Route: 042
     Dates: start: 20150826, end: 20150831
  38. HALOPERIDOL. [Concomitant]
     Active Substance: HALOPERIDOL
     Dosage: 2.5 MG, UNK
     Route: 042
     Dates: start: 20150721, end: 20150810
  39. CALCIUM FOLINAT [Suspect]
     Active Substance: LEUCOVORIN CALCIUM
     Dosage: 468 MG, UNK
     Route: 042
     Dates: start: 20160126, end: 20160126
  40. IRINOTECAN [Suspect]
     Active Substance: IRINOTECAN
     Indication: COLORECTAL CANCER
     Dosage: 200 MG, UNK
     Route: 042
     Dates: start: 20150603, end: 20150630
  41. OXALIPLATIN. [Suspect]
     Active Substance: OXALIPLATIN
     Dosage: 114 MG, UNK
     Route: 042
     Dates: start: 20150903, end: 20151104
  42. BEVACIZUMAB. [Suspect]
     Active Substance: BEVACIZUMAB
     Dosage: 245 MG, UNK
     Route: 042
  43. NOVAMINSULFON [Concomitant]
     Active Substance: METAMIZOLE
     Indication: COLORECTAL CANCER METASTATIC
     Route: 065
  44. HALOPERIDOL. [Concomitant]
     Active Substance: HALOPERIDOL
     Indication: VOMITING
     Dosage: 0.04 MG, UNK
     Route: 042
     Dates: start: 20150831, end: 20150901
  45. MIRTAZAPIN [Concomitant]
     Active Substance: MIRTAZAPINE
     Indication: ADJUSTMENT DISORDER WITH DEPRESSED MOOD
     Dosage: 15 MG, UNK
     Route: 048
     Dates: start: 20150605, end: 20151208
  46. CALCIUM FOLINAT [Suspect]
     Active Substance: LEUCOVORIN CALCIUM
     Indication: COLORECTAL CANCER
     Dosage: 456 MG, UNK
     Route: 042
     Dates: start: 20150903, end: 20151104
  47. OXALIPLATIN. [Suspect]
     Active Substance: OXALIPLATIN
     Indication: COLORECTAL CANCER
     Dosage: 78 MG, UNK
     Route: 042
     Dates: start: 20160212, end: 20160212
  48. OXALIPLATIN. [Suspect]
     Active Substance: OXALIPLATIN
     Dosage: 76 MG, UNK
     Route: 042
     Dates: start: 20151124, end: 20151124
  49. 5-FLUOROURACIL [Suspect]
     Active Substance: FLUOROURACIL
     Dosage: 4000 MG, UNK
     Route: 041
     Dates: start: 20150603, end: 20150805
  50. 5-FLUOROURACIL [Suspect]
     Active Substance: FLUOROURACIL
     Indication: PRODUCT USED FOR UNKNOWN INDICATION
     Dosage: 304 MG, UNK
     Route: 040
     Dates: start: 20151124, end: 20151124
  51. NOVAMINSULFON [Concomitant]
     Active Substance: METAMIZOLE
     Dosage: 6 MG, UNK
     Route: 042
     Dates: start: 20150831, end: 20150901
  52. NEXIUM [Concomitant]
     Active Substance: ESOMEPRAZOLE MAGNESIUM
     Indication: PROPHYLAXIS
     Dosage: 40 MG, UNK
     Route: 048
     Dates: start: 20150602, end: 20160224
  53. PEGFILGRASTIM [Concomitant]
     Active Substance: PEGFILGRASTIM
     Indication: PROPHYLAXIS
     Dosage: SINCE 2ND CYCLE OF THERAPY.
     Route: 058
     Dates: start: 20150620, end: 20151023
  54. CALCIUM FOLINAT [Suspect]
     Active Substance: LEUCOVORIN CALCIUM
     Dosage: 240 MG, UNK
     Route: 042
     Dates: start: 20150603, end: 20150805
  55. 5-FLUOROURACIL [Suspect]
     Active Substance: FLUOROURACIL
     Dosage: 312 MG, UNK
     Route: 040
     Dates: start: 20160108, end: 20160112
  56. 5-FLUOROURACIL [Suspect]
     Active Substance: FLUOROURACIL
     Dosage: 468 MG, UNK
     Route: 040
     Dates: start: 20160126, end: 20160126
  57. BEPANTHENE [Concomitant]
     Active Substance: DEXPANTHENOL
     Indication: MUCOSAL INFLAMMATION
     Dosage: 1-1-1 ()
     Route: 048

REACTIONS (9)
  - Neutropenia [Recovered/Resolved]
  - Pulmonary embolism [Recovered/Resolved]
  - Venous thrombosis limb [Recovered/Resolved]
  - Optic nerve disorder [Fatal]
  - Pneumonia [Recovered/Resolved]
  - Overdose [Unknown]
  - Metastases to meninges [Recovering/Resolving]
  - Disturbance in attention [Fatal]
  - Headache [Not Recovered/Not Resolved]

NARRATIVE: CASE EVENT DATE: 20150617
